FAERS Safety Report 23574562 (Version 1)
Quarter: 2024Q1

REPORT INFORMATION
  Report Type: Spontaneous
  Country: US (occurrence: US)
  Receive Date: 20240228
  Receipt Date: 20240228
  Transmission Date: 20240410
  Serious: Yes (Hospitalization, Other)
  Sender: FDA-Public Use
  Company Number: US-AMGEN-USASP2024038030

PATIENT
  Age: 75 Year
  Sex: Female

DRUGS (1)
  1. PROCRIT [Suspect]
     Active Substance: ERYTHROPOIETIN
     Indication: Product used for unknown indication
     Dosage: 10,000 UNITS/ML
     Route: 065

REACTIONS (4)
  - Cardiac operation [Unknown]
  - Post procedural sepsis [Unknown]
  - Renal failure [Unknown]
  - Anaemia [Unknown]

NARRATIVE: CASE EVENT DATE: 20231101
